FAERS Safety Report 10237055 (Version 2)
Quarter: 2014Q2

REPORT INFORMATION
  Report Type: Spontaneous
  Country: US (occurrence: US)
  Receive Date: 20140613
  Receipt Date: 20140613
  Transmission Date: 20141212
  Serious: Yes (Other)
  Sender: FDA-Public Use
  Company Number: US-BANPHARM-20142778

PATIENT
  Age: 52 Year
  Sex: Female
  Weight: 92.99 kg

DRUGS (1)
  1. ALEVE LIQUID GELS 220 MG [Suspect]
     Indication: MUSCULOSKELETAL PAIN
     Dosage: 2 DF, PRN,
     Route: 048
     Dates: start: 201405, end: 20140601

REACTIONS (4)
  - Choking [Recovered/Resolved]
  - Haemoptysis [Recovered/Resolved]
  - Eye haemorrhage [Not Recovered/Not Resolved]
  - Cough [Recovered/Resolved]
